FAERS Safety Report 10788015 (Version 1)
Quarter: 2015Q1

REPORT INFORMATION
  Report Type: Spontaneous
  Country: US (occurrence: None)
  Receive Date: 20150211
  Receipt Date: 20150211
  Transmission Date: 20150721
  Serious: Yes (Death)
  Sender: FDA-Public Use
  Company Number: None

PATIENT
  Age: 55 Year
  Sex: Male
  Weight: 116.12 kg

DRUGS (1)
  1. KETAMINE [Suspect]
     Active Substance: KETAMINE
     Indication: ENDOTRACHEAL INTUBATION
     Route: 042

REACTIONS (6)
  - Cardiogenic shock [None]
  - Respiratory distress [None]
  - Cardiac arrest [None]
  - Dilatation ventricular [None]
  - Lung consolidation [None]
  - Pulmonary oedema [None]

NARRATIVE: CASE EVENT DATE: 20150127
